FAERS Safety Report 5868710-7 (Version None)
Quarter: 2008Q3

REPORT INFORMATION
  Report Type: 
  Country: None (occurrence: None)
  Receive Date: 20080903
  Receipt Date: 20080829
  Transmission Date: 20090109
  Serious: Yes (Hospitalization, Other)
  Sender: FDA-Public Use
  Company Number: PHHY2008JP14986

PATIENT
  Age: 5 Year
  Sex: Male

DRUGS (7)
  1. TEGRETOL [Suspect]
     Indication: EPILEPSY
     Dosage: 200 MG DIVIDED INTO TWO DOSES DAILY IN MORNING AND EVENING
     Route: 048
     Dates: end: 20080715
  2. TEGRETOL [Suspect]
     Dosage: 200 MG
     Dates: start: 20080725
  3. ONON [Suspect]
     Indication: ASTHMA
     Dosage: 240 MG
     Route: 048
     Dates: start: 20070901, end: 20080725
  4. MYSTAN [Concomitant]
     Dosage: 0.5 MG BEFORE DINNER
     Route: 048
  5. ASVERIN [Concomitant]
     Indication: ASTHMA
     Route: 048
  6. MUCODYNE [Concomitant]
     Indication: ASTHMA
     Route: 048
  7. PULSMARIN A [Concomitant]
     Indication: ASTHMA

REACTIONS (5)
  - ALTERED STATE OF CONSCIOUSNESS [None]
  - DRUG INTERACTION [None]
  - DRUG LEVEL INCREASED [None]
  - NASOPHARYNGITIS [None]
  - TREATMENT NONCOMPLIANCE [None]
